FAERS Safety Report 25360306 (Version 1)
Quarter: 2025Q2

REPORT INFORMATION
  Report Type: Spontaneous
  Country: CN (occurrence: CN)
  Receive Date: 20250527
  Receipt Date: 20250527
  Transmission Date: 20250717
  Serious: Yes (Other)
  Sender: BEIGENE
  Company Number: CN-BEIGENE-BGN-2025-008140

PATIENT
  Age: 71 Year

DRUGS (16)
  1. TISLELIZUMAB [Suspect]
     Active Substance: TISLELIZUMAB
     Indication: Lung neoplasm malignant
  2. TISLELIZUMAB [Suspect]
     Active Substance: TISLELIZUMAB
     Route: 041
  3. TISLELIZUMAB [Suspect]
     Active Substance: TISLELIZUMAB
     Route: 041
  4. TISLELIZUMAB [Suspect]
     Active Substance: TISLELIZUMAB
  5. ETOPOSIDE [Concomitant]
     Active Substance: ETOPOSIDE
     Indication: Lung neoplasm malignant
  6. ETOPOSIDE [Concomitant]
     Active Substance: ETOPOSIDE
     Route: 041
  7. ETOPOSIDE [Concomitant]
     Active Substance: ETOPOSIDE
     Route: 041
  8. ETOPOSIDE [Concomitant]
     Active Substance: ETOPOSIDE
  9. SODIUM CHLORIDE [Concomitant]
     Active Substance: SODIUM CHLORIDE
     Indication: Vehicle solution use
     Dosage: 100 MILLILITER, QD
  10. SODIUM CHLORIDE [Concomitant]
     Active Substance: SODIUM CHLORIDE
     Dosage: 100 MILLILITER, QD
     Route: 041
  11. SODIUM CHLORIDE [Concomitant]
     Active Substance: SODIUM CHLORIDE
     Dosage: 500 MILLILITER, QD
  12. SODIUM CHLORIDE [Concomitant]
     Active Substance: SODIUM CHLORIDE
     Dosage: 500 MILLILITER, QD
     Route: 041
  13. CISPLATIN [Concomitant]
     Active Substance: CISPLATIN
     Indication: Lung neoplasm malignant
     Dosage: 40 MILLIGRAM, QD
  14. CISPLATIN [Concomitant]
     Active Substance: CISPLATIN
     Dosage: 40 MILLIGRAM, QD
     Route: 041
  15. CISPLATIN [Concomitant]
     Active Substance: CISPLATIN
     Dosage: 40 MILLIGRAM, QD
     Route: 041
  16. CISPLATIN [Concomitant]
     Active Substance: CISPLATIN
     Dosage: 40 MILLIGRAM, QD

REACTIONS (1)
  - Hepatic function abnormal [Recovering/Resolving]
